FAERS Safety Report 20345867 (Version 1)
Quarter: 2022Q1

REPORT INFORMATION
  Report Type: Report from Study
  Country: FR (occurrence: FR)
  Receive Date: 20220118
  Receipt Date: 20220118
  Transmission Date: 20220423
  Serious: Yes (Hospitalization, Other)
  Sender: FDA-Public Use
  Company Number: FR-ASTELLAS-2013EU008787

PATIENT
  Age: 22 Year
  Sex: Female
  Weight: 44 kg

DRUGS (27)
  1. TACROLIMUS [Suspect]
     Active Substance: TACROLIMUS
     Indication: Prophylaxis against transplant rejection
     Dosage: 0.4 MG, TWICE DAILY
     Route: 048
     Dates: start: 20130506
  2. TACROLIMUS [Suspect]
     Active Substance: TACROLIMUS
     Dosage: 0.8 MG, UNKNOWN FREQ.
     Route: 065
     Dates: start: 20130516
  3. TACROLIMUS [Suspect]
     Active Substance: TACROLIMUS
     Dosage: 0.4 MG, UNKNOWN FREQ.
     Route: 065
     Dates: start: 20130627
  4. TACROLIMUS [Suspect]
     Active Substance: TACROLIMUS
     Dosage: 0.4 MG, UNKNOWN FREQ.
     Route: 065
     Dates: start: 20130705
  5. TACROLIMUS [Suspect]
     Active Substance: TACROLIMUS
     Dosage: 0.4 MG, UNKNOWN FREQ.
     Route: 065
     Dates: start: 20130715
  6. TACROLIMUS [Suspect]
     Active Substance: TACROLIMUS
     Dosage: 0.4 MG, UNKNOWN FREQ.
     Route: 065
     Dates: start: 20130716
  7. TACROLIMUS [Suspect]
     Active Substance: TACROLIMUS
     Dosage: 0.4 MG, UNKNOWN FREQ.
     Route: 065
     Dates: start: 20130722
  8. TACROLIMUS [Suspect]
     Active Substance: TACROLIMUS
     Dosage: 0.8 MG, UNKNOWN FREQ.
     Route: 065
     Dates: start: 20130801
  9. TACROLIMUS [Suspect]
     Active Substance: TACROLIMUS
     Dosage: 0.8 MG, UNKNOWN FREQ.
     Route: 065
     Dates: start: 20130802, end: 20130805
  10. TACROLIMUS [Suspect]
     Active Substance: TACROLIMUS
     Dosage: UNK UNK, UNKNOWN FREQ.
     Route: 065
     Dates: end: 20130815
  11. PROGRAF [Suspect]
     Active Substance: TACROLIMUS
     Indication: Lung transplant
     Dosage: UNK UNK, UNKNOWN FREQ.
     Route: 065
     Dates: start: 2012, end: 201307
  12. CERTICAN [Suspect]
     Active Substance: EVEROLIMUS
     Indication: Lung transplant
     Dosage: UNK UNK, UNKNOWN FREQ.
     Route: 048
     Dates: start: 2012, end: 201308
  13. MYCOPHENOLATE MOFETIL [Concomitant]
     Active Substance: MYCOPHENOLATE MOFETIL
     Indication: Prophylaxis against transplant rejection
     Route: 048
     Dates: start: 20130720, end: 20130801
  14. EVEROLIMUS [Concomitant]
     Active Substance: EVEROLIMUS
     Indication: Prophylaxis against transplant rejection
     Dosage: 0.5 MG, ONCE DAILY
     Route: 048
     Dates: start: 20130801, end: 20130815
  15. VALACYCLOVIR HYDROCHLORIDE [Concomitant]
     Active Substance: VALACYCLOVIR HYDROCHLORIDE
     Indication: Product used for unknown indication
     Dosage: UNK UNK, UNKNOWN FREQ.
     Route: 065
  16. SPORANOX [Concomitant]
     Active Substance: ITRACONAZOLE
     Indication: Product used for unknown indication
     Dosage: UNK UNK, UNKNOWN FREQ.
     Route: 065
  17. PENTACARINAT [Concomitant]
     Active Substance: PENTAMIDINE ISETHIONATE
     Indication: Product used for unknown indication
     Dosage: UNK UNK, UNKNOWN FREQ.
     Route: 065
  18. CREON [Concomitant]
     Active Substance: PANCRELIPASE AMYLASE\PANCRELIPASE LIPASE\PANCRELIPASE PROTEASE
     Indication: Product used for unknown indication
     Route: 065
  19. SOLU-MEDROL [Concomitant]
     Active Substance: METHYLPREDNISOLONE SODIUM SUCCINATE
     Indication: Product used for unknown indication
     Dosage: UNK UNK, TWICE DAILY
     Route: 065
  20. ESOMEPRAZOLE [Concomitant]
     Active Substance: ESOMEPRAZOLE
     Indication: Product used for unknown indication
     Dosage: UNK UNK, UNKNOWN FREQ.
     Route: 065
  21. Transipeg [Concomitant]
     Indication: Product used for unknown indication
     Dosage: UNK UNK, UNKNOWN FREQ.
     Route: 065
  22. PHLOROGLUCINOL [Concomitant]
     Active Substance: PHLOROGLUCINOL
     Indication: Product used for unknown indication
     Dosage: UNK UNK, UNKNOWN FREQ.
     Route: 065
  23. PRIMPERAN [Concomitant]
     Active Substance: METOCLOPRAMIDE HYDROCHLORIDE
     Indication: Product used for unknown indication
     Dosage: UNK UNK, UNKNOWN FREQ.
     Route: 065
  24. Cerazette [Concomitant]
     Indication: Product used for unknown indication
     Dosage: UNK UNK, UNKNOWN FREQ.
     Route: 065
  25. FASTURTEC [Concomitant]
     Active Substance: RASBURICASE
     Indication: Product used for unknown indication
     Dosage: UNK UNK, UNKNOWN FREQ.
     Route: 065
  26. ERYTHROPOIETIN [Concomitant]
     Active Substance: ERYTHROPOIETIN
     Indication: Product used for unknown indication
     Dosage: UNK UNK, UNKNOWN FREQ.
     Route: 065
  27. INSULIN NOS [Concomitant]
     Active Substance: INSULIN NOS
     Indication: Product used for unknown indication
     Dosage: UNK UNK, UNKNOWN FREQ.
     Route: 065

REACTIONS (7)
  - Immunosuppressant drug level increased [Recovered/Resolved]
  - Immunosuppressant drug level increased [Recovered/Resolved]
  - Thrombotic microangiopathy [Not Recovered/Not Resolved]
  - Renal failure [Not Recovered/Not Resolved]
  - Anaemia [Unknown]
  - Epstein-Barr virus associated lymphoma [Unknown]
  - Off label use [Unknown]

NARRATIVE: CASE EVENT DATE: 20130701
